FAERS Safety Report 23491327 (Version 2)
Quarter: 2024Q1

REPORT INFORMATION
  Report Type: Spontaneous
  Country: PT (occurrence: PT)
  Receive Date: 20240207
  Receipt Date: 20240226
  Transmission Date: 20240409
  Serious: Yes (Life-Threatening, Hospitalization, Other)
  Sender: FDA-Public Use
  Company Number: PT-HIKMA PHARMACEUTICALS-PT-H14001-24-00553

PATIENT
  Age: 61 Year
  Sex: Male

DRUGS (11)
  1. OXALIPLATIN [Suspect]
     Active Substance: OXALIPLATIN
     Indication: Metastases to peritoneum
     Dosage: UNKNOWN
     Route: 065
  2. OXALIPLATIN [Suspect]
     Active Substance: OXALIPLATIN
     Indication: Adenocarcinoma gastric
  3. BRIVUDINE [Suspect]
     Active Substance: BRIVUDINE
     Indication: Adenocarcinoma gastric
     Dosage: UNKNOWN
     Route: 065
  4. BRIVUDINE [Suspect]
     Active Substance: BRIVUDINE
     Indication: Metastases to peritoneum
  5. LEUCOVORIN CALCIUM [Suspect]
     Active Substance: LEUCOVORIN CALCIUM
     Indication: Metastases to peritoneum
     Dosage: UNKNOWN
     Route: 065
  6. LEUCOVORIN CALCIUM [Suspect]
     Active Substance: LEUCOVORIN CALCIUM
     Indication: Adenocarcinoma gastric
  7. FLUOROURACIL [Suspect]
     Active Substance: FLUOROURACIL
     Indication: Adenocarcinoma gastric
     Dosage: UNKNOWN
     Route: 065
  8. FLUOROURACIL [Suspect]
     Active Substance: FLUOROURACIL
     Indication: Metastases to peritoneum
  9. BRIVUDINE [Suspect]
     Active Substance: BRIVUDINE
     Indication: Herpes zoster
     Dosage: UNK
     Route: 065
  10. LEUCOVORIN [Concomitant]
     Active Substance: LEUCOVORIN\LEUCOVORIN CALCIUM
     Indication: Metastases to peritoneum
     Dosage: UNK
     Route: 065
  11. LEUCOVORIN [Concomitant]
     Active Substance: LEUCOVORIN\LEUCOVORIN CALCIUM
     Indication: Adenocarcinoma gastric

REACTIONS (10)
  - Mucosal inflammation [Recovering/Resolving]
  - Neutropenia [Recovering/Resolving]
  - Thrombocytopenia [Recovering/Resolving]
  - Weight decreased [Recovering/Resolving]
  - Erythema [Recovering/Resolving]
  - Alopecia [Recovering/Resolving]
  - Food intolerance [Recovering/Resolving]
  - Odynophagia [Recovering/Resolving]
  - Labelled drug-drug interaction issue [Unknown]
  - Drug interaction [Recovering/Resolving]
